FAERS Safety Report 4445773-7 (Version None)
Quarter: 2004Q3

REPORT INFORMATION
  Report Type: 
  Country: None (occurrence: None)
  Receive Date: 20040910
  Receipt Date: 20040901
  Transmission Date: 20050211
  Serious: Yes (Hospitalization)
  Sender: FDA-Public Use
  Company Number: 200413252FR

PATIENT
  Age: 61 Year
  Sex: Male

DRUGS (3)
  1. LASIX [Suspect]
     Route: 048
     Dates: start: 20040526, end: 20040710
  2. OMEPRAZOLE [Suspect]
     Route: 048
     Dates: start: 20040611, end: 20040705
  3. DOBUTAMINE [Concomitant]
     Route: 042
     Dates: start: 20040611, end: 20040618

REACTIONS (5)
  - ANAEMIA [None]
  - EOSINOPHILIA [None]
  - OEDEMA PERIPHERAL [None]
  - RASH ERYTHEMATOUS [None]
  - RENAL FAILURE [None]
